FAERS Safety Report 8386547-4 (Version None)
Quarter: 2012Q2

REPORT INFORMATION
  Report Type: 
  Country: None (occurrence: None)
  Receive Date: 20120525
  Receipt Date: 20110623
  Transmission Date: 20120825
  Serious: No
  Sender: FDA-Public Use
  Company Number: US-GLAXOSMITHKLINE-A0932735A

PATIENT
  Age: 74 Year
  Sex: Male

DRUGS (14)
  1. VERAMYST [Suspect]
     Indication: SINUS DISORDER
     Dosage: 1SPR PER DAY
     Route: 045
     Dates: start: 20090101, end: 20110623
  2. VITAMIN B COMPLEX CAP [Concomitant]
  3. FIBER PILL [Concomitant]
  4. TORSEMIDE [Concomitant]
  5. PANTOPRAZOLE [Concomitant]
  6. SANDOSTATIN [Concomitant]
  7. DRONABINOL [Concomitant]
  8. TAMSULOSIN HCL [Concomitant]
  9. KLOR-CON [Concomitant]
  10. ASCORBIC ACID [Concomitant]
  11. VITAMIN D [Concomitant]
  12. FUROSEMIDE [Concomitant]
  13. TRIAMTERENE AND HYDROCHLOROTHIAZIDE [Concomitant]
  14. FOLIC ACID [Concomitant]

REACTIONS (4)
  - DYSPNOEA [None]
  - MIDDLE INSOMNIA [None]
  - SINUSITIS [None]
  - ANXIETY [None]
